FAERS Safety Report 7381483-4 (Version None)
Quarter: 2011Q1

REPORT INFORMATION
  Report Type: 
  Country: None (occurrence: None)
  Receive Date: 20110329
  Receipt Date: 20110324
  Transmission Date: 20110831
  Serious: Yes (Hospitalization)
  Sender: FDA-Public Use
  Company Number: US-MERCK-0908USA01043

PATIENT
  Age: 59 Year
  Sex: Female

DRUGS (3)
  1. FOSAMAX [Suspect]
     Route: 048
  2. FOSAMAX [Suspect]
     Indication: OSTEOPOROSIS
     Route: 048
     Dates: start: 20090501
  3. PULMICORT [Concomitant]
     Route: 065

REACTIONS (5)
  - MALAISE [None]
  - RESPIRATORY DISTRESS [None]
  - PANCREATITIS [None]
  - COMA [None]
  - DYSPHONIA [None]
